FAERS Safety Report 9624259 (Version 1)
Quarter: 2013Q4

REPORT INFORMATION
  Report Type: Spontaneous
  Country: US (occurrence: US)
  Receive Date: 20131015
  Receipt Date: 20131015
  Transmission Date: 20140711
  Serious: No
  Sender: FDA-Public Use
  Company Number: US-BAYER-2013-124691

PATIENT
  Sex: Female

DRUGS (3)
  1. ALEVE CAPLET [Suspect]
     Dosage: 4 DF, UNK
  2. ADVIL [Suspect]
  3. TYLENOL [PARACETAMOL] [Suspect]

REACTIONS (2)
  - Extra dose administered [None]
  - Drug ineffective [None]
